FAERS Safety Report 6608834-X (Version None)
Quarter: 2010Q1

REPORT INFORMATION
  Report Type: 
  Country: None (occurrence: None)
  Receive Date: 20100225
  Receipt Date: 20100225
  Transmission Date: 20100710
  Serious: No
  Sender: FDA-Public Use
  Company Number: None

PATIENT
  Age: 49 Year
  Sex: Female
  Weight: 87.5442 kg

DRUGS (1)
  1. LAMOTRIGINE [Suspect]
     Dosage: 150 MG DAILY ORAL
     Route: 048

REACTIONS (4)
  - AGITATION [None]
  - ANXIETY [None]
  - DRUG TOLERANCE DECREASED [None]
  - PRODUCT SUBSTITUTION ISSUE [None]
